FAERS Safety Report 8769013 (Version 1)
Quarter: 2012Q4

REPORT INFORMATION
  Report Type: 
  Country: CZ (occurrence: CZ)
  Receive Date: 20120830
  Receipt Date: 20120830
  Transmission Date: 20130627
  Serious: Yes (Other)
  Sender: FDA-Public Use
  Company Number: CZ-PFIZER INC-2012211272

PATIENT
  Age: 41 Year
  Sex: Female

DRUGS (4)
  1. VENLAFAXINE HYDROCHLORIDE [Suspect]
     Dosage: 150 mg/day
  2. MIANSERIN [Concomitant]
     Dosage: 60 mg/day
  3. CLONAZEPAM [Concomitant]
     Dosage: 1 mg/day
  4. OLANZAPINE [Concomitant]
     Dosage: 10 mg/day

REACTIONS (2)
  - Toxicity to various agents [Unknown]
  - CYP2D6 polymorphism [Unknown]
